FAERS Safety Report 6301513-8 (Version None)
Quarter: 2009Q3

REPORT INFORMATION
  Report Type: 
  Country: None (occurrence: None)
  Receive Date: 20090807
  Receipt Date: 20090730
  Transmission Date: 20100115
  Serious: Yes (Death)
  Sender: FDA-Public Use
  Company Number: B0586515A

PATIENT
  Sex: Male

DRUGS (15)
  1. AUGMENTIN '125' [Suspect]
     Indication: BRONCHITIS
     Dosage: 1G TWICE PER DAY
     Route: 048
     Dates: start: 20090527, end: 20090529
  2. CORTANCYL [Concomitant]
     Indication: BRONCHITIS
     Dosage: 10MG PER DAY
     Route: 065
     Dates: start: 20090527
  3. BRICANYL [Concomitant]
     Indication: BRONCHITIS
     Route: 065
     Dates: start: 20090527
  4. CAPTOPRIL [Concomitant]
     Route: 065
  5. DILTIAZEM HCL [Concomitant]
     Route: 065
  6. LASIX [Concomitant]
     Route: 065
  7. NITROGLYCERIN [Concomitant]
     Route: 065
  8. MONICOR [Concomitant]
     Route: 065
  9. LYRICA [Concomitant]
     Route: 065
  10. PREVISCAN [Concomitant]
     Route: 065
  11. PERMIXON [Concomitant]
     Route: 065
  12. SYMBICORT [Concomitant]
     Route: 065
  13. SPIRIVA [Concomitant]
     Route: 065
  14. BRONCHODUAL [Concomitant]
     Route: 065
  15. ATROVENT [Concomitant]
     Indication: BRONCHITIS
     Route: 065
     Dates: start: 20090527

REACTIONS (6)
  - DEEP VEIN THROMBOSIS [None]
  - DERMATITIS BULLOUS [None]
  - PULMONARY OEDEMA [None]
  - RASH MACULAR [None]
  - SKIN DISORDER [None]
  - TOXIC EPIDERMAL NECROLYSIS [None]
